FAERS Safety Report 21683683 (Version 1)
Quarter: 2022Q4

REPORT INFORMATION
  Report Type: Spontaneous
  Country: US (occurrence: None)
  Receive Date: 20221202
  Receipt Date: 20221202
  Transmission Date: 20230113
  Serious: No
  Sender: FDA-Public Use
  Company Number: None

PATIENT
  Age: 81 Year
  Sex: Male

DRUGS (1)
  1. EPLERENONE [Suspect]
     Active Substance: EPLERENONE
     Indication: Renal disorder
     Dosage: FREQUENCY : DAILY;?
     Route: 048

REACTIONS (1)
  - Blood pressure inadequately controlled [None]

NARRATIVE: CASE EVENT DATE: 20220602
